FAERS Safety Report 17349892 (Version 1)
Quarter: 2020Q1

REPORT INFORMATION
  Report Type: Spontaneous
  Country: US (occurrence: US)
  Receive Date: 20200130
  Receipt Date: 20200130
  Transmission Date: 20200409
  Serious: No
  Sender: FDA-Public Use
  Company Number: US-009507513-2001USA007858

PATIENT
  Age: 80 Year
  Sex: Female

DRUGS (16)
  1. CYANOCOBALAMIN. [Concomitant]
     Active Substance: CYANOCOBALAMIN
  2. GINKGO [Concomitant]
     Active Substance: GINKGO
  3. PEPPERMINT OIL [Concomitant]
     Active Substance: PEPPERMINT OIL
  4. VENTOLIN [Concomitant]
     Active Substance: ALBUTEROL SULFATE
  5. RIBOFLAVIN [Concomitant]
     Active Substance: RIBOFLAVIN
  6. DANDELION [Concomitant]
     Active Substance: TARAXACUM OFFICINALE POLLEN
  7. VITEYES AREDS FORMULA [Concomitant]
  8. FIBER [Concomitant]
     Active Substance: PSYLLIUM HUSK
  9. DULERA [Suspect]
     Active Substance: FORMOTEROL FUMARATE DIHYDRATE\MOMETASONE FUROATE
     Indication: ASTHMA
     Dosage: 2 INHALATIONS/TWICE DAILY
     Dates: start: 20191217
  10. LEVOTHYROXINE SODIUM. [Concomitant]
     Active Substance: LEVOTHYROXINE SODIUM
     Dosage: 112 MG DAILY
  11. OMEGA-3 MARINE TRIGLYCERIDES [Concomitant]
     Active Substance: FISH OIL
  12. CALCIUM DURA VIT D3 TABLETS [Concomitant]
  13. SAMBUCUS (UNSPECIFIED) [Concomitant]
  14. DIURETIC (UNSPECIFIED) [Concomitant]
     Active Substance: UNSPECIFIED INGREDIENT
  15. BUSTER BRANDS SINUS BUSTER [Concomitant]
  16. INDIAN FRANKINCENSE [Concomitant]
     Active Substance: INDIAN FRANKINCENSE

REACTIONS (4)
  - Dizziness [Recovering/Resolving]
  - Poor quality device used [Unknown]
  - Product quality issue [Unknown]
  - Incorrect dose administered [Unknown]

NARRATIVE: CASE EVENT DATE: 20200118
